FAERS Safety Report 18393796 (Version 1)
Quarter: 2020Q4

REPORT INFORMATION
  Report Type: Spontaneous
  Country: PT (occurrence: PT)
  Receive Date: 20201016
  Receipt Date: 20201016
  Transmission Date: 20210114
  Serious: Yes (Other)
  Sender: FDA-Public Use
  Company Number: PT-MYLANLABS-2020M1086876

PATIENT
  Age: 13 Year
  Sex: Male

DRUGS (1)
  1. ONDANSETRON [Suspect]
     Active Substance: ONDANSETRON
     Indication: PRODUCT USED FOR UNKNOWN INDICATION
     Dosage: UNK
     Route: 065

REACTIONS (7)
  - Back pain [Unknown]
  - Blood creatinine increased [Unknown]
  - Extravasation of urine [Unknown]
  - Urinoma [Unknown]
  - Hydronephrosis [Unknown]
  - Haematuria [Unknown]
  - Perinephric collection [Unknown]
